APPROVED DRUG PRODUCT: LIPOSYN III 20%
Active Ingredient: SOYBEAN OIL
Strength: 20%
Dosage Form/Route: INJECTABLE;INJECTION
Application: N018970 | Product #001
Applicant: HOSPIRA INC
Approved: Sep 25, 1984 | RLD: No | RS: No | Type: DISCN